FAERS Safety Report 18877392 (Version 1)
Quarter: 2021Q1

REPORT INFORMATION
  Report Type: Spontaneous
  Country: CA (occurrence: CA)
  Receive Date: 20210211
  Receipt Date: 20210211
  Transmission Date: 20210420
  Serious: Yes (Hospitalization)
  Sender: FDA-Public Use
  Company Number: CA-TILLOMEDPR-2021-EPL-000400

PATIENT
  Age: 60 Year
  Sex: Male

DRUGS (1)
  1. RIZATRIPTAN. [Suspect]
     Active Substance: RIZATRIPTAN
     Indication: MIGRAINE
     Dosage: 10 MILLIGRAM
     Route: 048

REACTIONS (3)
  - Supraventricular tachycardia [Unknown]
  - Chest pain [Unknown]
  - Dizziness [Unknown]
